FAERS Safety Report 14761530 (Version 1)
Quarter: 2018Q2

REPORT INFORMATION
  Report Type: Spontaneous
  Country: US (occurrence: US)
  Receive Date: 20180416
  Receipt Date: 20180416
  Transmission Date: 20180711
  Serious: No
  Sender: FDA-Public Use
  Company Number: US-ALVOGEN-2017-ALVOGEN-093266

PATIENT
  Sex: Male

DRUGS (4)
  1. RESCUE INHALER [Concomitant]
     Route: 055
  2. ATENOLOL. [Suspect]
     Active Substance: ATENOLOL
     Indication: BLOOD PRESSURE FLUCTUATION
     Route: 048
  3. ATENOLOL. [Suspect]
     Active Substance: ATENOLOL
     Indication: BLOOD PRESSURE ABNORMAL
     Route: 048
  4. SYMBICORT [Suspect]
     Active Substance: BUDESONIDE\FORMOTEROL FUMARATE DIHYDRATE
     Indication: BLOOD PRESSURE ABNORMAL
     Dosage: 2 PUFFS BID
     Route: 055
     Dates: start: 2011

REACTIONS (5)
  - Appetite disorder [Unknown]
  - Drug dose omission [Not Recovered/Not Resolved]
  - Blood pressure abnormal [Unknown]
  - Sleep disorder [Unknown]
  - Off label use [Unknown]

NARRATIVE: CASE EVENT DATE: 2016
